FAERS Safety Report 15197193 (Version 1)
Quarter: 2018Q3

REPORT INFORMATION
  Report Type: Spontaneous
  Country: GB (occurrence: GB)
  Receive Date: 20180725
  Receipt Date: 20180725
  Transmission Date: 20181010
  Serious: Yes (Other)
  Sender: FDA-Public Use
  Company Number: GB-MYLANLABS-2018M1053804

PATIENT
  Age: 60 Year
  Sex: Male

DRUGS (1)
  1. SILDENAFIL. [Suspect]
     Active Substance: SILDENAFIL
     Indication: PRODUCT USED FOR UNKNOWN INDICATION
     Dosage: UNK

REACTIONS (5)
  - Metastatic carcinoid tumour [Unknown]
  - Carcinoid syndrome [Unknown]
  - Visual impairment [Unknown]
  - Colon cancer [Unknown]
  - Amblyopia [Unknown]
